FAERS Safety Report 20384946 (Version 3)
Quarter: 2022Q1

REPORT INFORMATION
  Report Type: Report from Study
  Country: AU (occurrence: AU)
  Receive Date: 20220127
  Receipt Date: 20220309
  Transmission Date: 20220424
  Serious: Yes (Hospitalization)
  Sender: FDA-Public Use
  Company Number: AU-VERTEX PHARMACEUTICALS-2022-001238

PATIENT
  Age: 28 Year
  Sex: Female
  Weight: 58 kg

DRUGS (24)
  1. ELEXACAFTOR\IVACAFTOR\TEZACAFTOR [Suspect]
     Active Substance: ELEXACAFTOR\IVACAFTOR\TEZACAFTOR
     Indication: Cystic fibrosis
     Dosage: 2 TABS (VX445/TEZA/IVA) AM, 1 TAB (IVA) PM
     Route: 048
     Dates: start: 20220119, end: 20220120
  2. TOBI [Concomitant]
     Active Substance: TOBRAMYCIN
     Indication: Cystic fibrosis lung
     Dosage: 300 MG, BID
     Route: 055
     Dates: start: 20210119
  3. CALCIUM LACTATE\DEXTROSE\POTASSIUM CHLORIDE\SODIUM BICARBONATE\SODIUM [Concomitant]
     Active Substance: CALCIUM LACTATE\DEXTROSE\POTASSIUM CHLORIDE\SODIUM BICARBONATE\SODIUM CHLORIDE
     Indication: Sinusitis
     Dosage: 1 SACHET, PRN
     Route: 045
     Dates: start: 2016
  4. ISOTRETINOIN [Concomitant]
     Active Substance: ISOTRETINOIN
     Indication: Acne
     Dosage: 1 CAP
     Route: 048
     Dates: start: 202001
  5. ECHINACEA 2000+ [Concomitant]
     Dosage: 2 TAB, QD.
     Route: 048
     Dates: start: 2020
  6. SPIRONOLACTONE [Concomitant]
     Active Substance: SPIRONOLACTONE
     Indication: Acne
     Dosage: 50MG, QD
     Route: 048
     Dates: start: 20211207
  7. CLOTRIMAZOLE [Concomitant]
     Active Substance: CLOTRIMAZOLE
     Indication: Vulvovaginal candidiasis
     Dosage: 1%, PRN
     Route: 061
     Dates: start: 2019
  8. VALACYCLOVIR HYDROCHLORIDE [Concomitant]
     Active Substance: VALACYCLOVIR HYDROCHLORIDE
     Indication: Prophylaxis
     Dosage: 500 MG, PRN
     Route: 048
     Dates: start: 2017
  9. PULMOZYME [Concomitant]
     Active Substance: DORNASE ALFA
     Indication: Cystic fibrosis lung
     Dosage: 25 MG, QD
     Route: 055
     Dates: start: 2016
  10. SERETIDE [Concomitant]
     Active Substance: FLUTICASONE PROPIONATE\SALMETEROL XINAFOATE
     Indication: Cystic fibrosis lung
     Dosage: 2 PUFFS, BID
     Dates: start: 202111
  11. VENTOLIN [Concomitant]
     Active Substance: ALBUTEROL SULFATE
     Indication: Cystic fibrosis lung
     Dosage: 2 PUFFS, BID
     Dates: start: 1994
  12. SODIUM CHLORIDE [Concomitant]
     Active Substance: SODIUM CHLORIDE
     Indication: Cystic fibrosis lung
     Dosage: 4 ML, QD
     Route: 055
     Dates: start: 2011
  13. SERTRALINE [Concomitant]
     Active Substance: SERTRALINE HYDROCHLORIDE
     Indication: Depression
     Dosage: 25 MG, QD
     Route: 048
     Dates: start: 2016
  14. SERTRALINE [Concomitant]
     Active Substance: SERTRALINE HYDROCHLORIDE
     Indication: Anxiety
  15. BECONASE AQ [Concomitant]
     Active Substance: BECLOMETHASONE DIPROPIONATE MONOHYDRATE
     Indication: Sinusitis
     Dosage: 1 PUFF, QD
     Route: 045
     Dates: start: 2016
  16. ONDANSETRON [Concomitant]
     Active Substance: ONDANSETRON
     Indication: Nausea
     Dosage: 1 TAB, PRN
     Route: 048
     Dates: start: 2019
  17. DOXYLAMINE SUCCINATE [Concomitant]
     Active Substance: DOXYLAMINE SUCCINATE
     Indication: Insomnia
     Dosage: 1 CAP, PRN
     Route: 048
     Dates: start: 2016
  18. IBUPROFEN [Concomitant]
     Active Substance: IBUPROFEN
     Indication: Dysmenorrhoea
     Dosage: 2 TABS, PRN
     Route: 048
     Dates: start: 2011
  19. IBUPROFEN [Concomitant]
     Active Substance: IBUPROFEN
     Indication: Headache
  20. DOCUSATE SODIUM\SENNOSIDES A AND B [Concomitant]
     Active Substance: DOCUSATE SODIUM\SENNOSIDES A AND B
     Indication: Prophylaxis
     Dosage: 2 TABS, PRN
     Route: 048
     Dates: start: 2016
  21. CREON [Concomitant]
     Active Substance: PANCRELIPASE AMYLASE\PANCRELIPASE LIPASE\PANCRELIPASE PROTEASE
     Indication: Pancreatic failure
     Dosage: 2 CAPS WITH FOOD
     Route: 048
     Dates: start: 2016
  22. PANTOPRAZOLE [Concomitant]
     Active Substance: PANTOPRAZOLE
     Indication: Gastrooesophageal reflux disease
     Dosage: 1 TAB, QD
     Route: 048
     Dates: start: 2016
  23. AMPHOTERICIN B [Concomitant]
     Active Substance: AMPHOTERICIN B
     Indication: Oral candidiasis
     Dosage: 1 LOZENGE, PRN
     Route: 048
     Dates: start: 2019
  24. AZITHROMYCIN [Concomitant]
     Active Substance: AZITHROMYCIN
     Indication: Cystic fibrosis lung
     Dosage: 1 TAB, THRICE PER WEEK
     Route: 048
     Dates: start: 2009

REACTIONS (1)
  - Pancreatitis [Recovered/Resolved]

NARRATIVE: CASE EVENT DATE: 20220120
